FAERS Safety Report 21551792 (Version 1)
Quarter: 2022Q4

REPORT INFORMATION
  Report Type: Spontaneous
  Country: US (occurrence: US)
  Receive Date: 20221104
  Receipt Date: 20221104
  Transmission Date: 20230113
  Serious: No
  Sender: FDA-Public Use
  Company Number: US-drreddys-SPO/USA/22/0156411

PATIENT
  Age: 19 Year

DRUGS (1)
  1. ZENATANE [Suspect]
     Active Substance: ISOTRETINOIN
     Indication: Acne
     Dosage: RMA ISSUE DATE: 07 JUNE 2022 03:23:06 PM, 14 JULY 2022 08:17:36 AM, 18 AUGUST 2022 08:15:00 AM, 18

REACTIONS (1)
  - Treatment noncompliance [Unknown]
